FAERS Safety Report 10695011 (Version 4)
Quarter: 2015Q2

REPORT INFORMATION
  Report Type: Spontaneous
  Country: GB (occurrence: GB)
  Receive Date: 20150107
  Receipt Date: 20150625
  Transmission Date: 20150821
  Serious: Yes (Hospitalization)
  Sender: FDA-Public Use
  Company Number: PHFR2015GB000455

PATIENT
  Age: 57 Year
  Sex: Male

DRUGS (2)
  1. CLOZARIL [Suspect]
     Active Substance: CLOZAPINE
     Indication: PSYCHOTIC DISORDER
     Dosage: 300 MG, QD
     Route: 048
     Dates: start: 2005
  2. PIRENZEPINE [Concomitant]
     Active Substance: PIRENZEPINE
     Indication: ADVERSE DRUG REACTION
     Dosage: 25 MG, QD
     Route: 048

REACTIONS (4)
  - Obesity [Not Recovered/Not Resolved]
  - Glucose tolerance impaired [Recovering/Resolving]
  - Palpitations [Recovering/Resolving]
  - Chest pain [Recovered/Resolved]

NARRATIVE: CASE EVENT DATE: 20141222
